FAERS Safety Report 15469552 (Version 2)
Quarter: 2018Q4

REPORT INFORMATION
  Report Type: Spontaneous
  Country: JP (occurrence: JP)
  Receive Date: 20181005
  Receipt Date: 20181218
  Transmission Date: 20190205
  Serious: Yes (Hospitalization, Other)
  Sender: FDA-Public Use
  Company Number: JP-PFIZER INC-2018395492

PATIENT
  Age: 64 Year
  Sex: Male
  Weight: 152.9 kg

DRUGS (13)
  1. FOSAMAC [Suspect]
     Active Substance: ALENDRONATE SODIUM
     Dosage: UNK
     Dates: end: 20180614
  2. PREDONINE [PREDNISOLONE ACETATE] [Concomitant]
     Dosage: UNK
  3. GASLON [Concomitant]
     Active Substance: IRSOGLADINE MALEATE
     Dosage: UNK
  4. RHEUMATREX [Suspect]
     Active Substance: METHOTREXATE SODIUM
     Indication: RHEUMATOID ARTHRITIS
     Dosage: 6 MG, WEEKLY, 4MG ON SATURDAY, 2MG ON SUNDAY
     Route: 048
     Dates: end: 20180721
  5. FOLIAMIN [Concomitant]
     Active Substance: FOLIC ACID
     Dosage: UNK
  6. NOVORAPID [Concomitant]
     Active Substance: INSULIN ASPART
     Dosage: UNK
  7. GLACTIV [Concomitant]
     Active Substance: SITAGLIPTIN
     Dosage: UNK
     Dates: end: 20180727
  8. AVAPRO [Concomitant]
     Active Substance: IRBESARTAN
     Dosage: UNK
     Dates: end: 20180726
  9. LIPITOR [Concomitant]
     Active Substance: ATORVASTATIN CALCIUM
     Dosage: UNK
  10. CELECOX [Concomitant]
     Active Substance: CELECOXIB
     Dosage: UNK
     Dates: end: 20180727
  11. EDIROL [Concomitant]
     Active Substance: ELDECALCITOL
     Dosage: UNK
     Dates: end: 20180726
  12. SEIBULE [Concomitant]
     Active Substance: MIGLITOL
     Dosage: UNK
  13. RHYTHMY [Concomitant]
     Active Substance: RILMAZAFONE HYDROCHLORIDE
     Dosage: UNK

REACTIONS (3)
  - Osteomyelitis [Recovered/Resolved]
  - Lymphoproliferative disorder [Recovered/Resolved]
  - Gingivitis ulcerative [Recovered/Resolved]

NARRATIVE: CASE EVENT DATE: 20180628
